FAERS Safety Report 9261961 (Version 2)
Quarter: 2013Q4

REPORT INFORMATION
  Report Type: Report from Study
  Country: US (occurrence: US)
  Receive Date: 20130429
  Receipt Date: 20131227
  Transmission Date: 20140711
  Serious: Yes (Hospitalization)
  Sender: FDA-Public Use
  Company Number: US-US-EMD SERONO, INC.-7207247

PATIENT
  Age: 56 Year
  Sex: Female

DRUGS (2)
  1. REBIF [Suspect]
     Indication: MULTIPLE SCLEROSIS
     Dates: start: 20101112
  2. REBIF [Suspect]
     Route: 058
     Dates: start: 20130923

REACTIONS (5)
  - Goitre [Recovered/Resolved]
  - Benign neoplasm of thyroid gland [Recovered/Resolved]
  - Upper respiratory tract infection [Recovered/Resolved]
  - Stress [Unknown]
  - Multiple sclerosis relapse [Recovered/Resolved]
